FAERS Safety Report 6812409-7 (Version None)
Quarter: 2010Q2

REPORT INFORMATION
  Report Type: 
  Country: None (occurrence: None)
  Receive Date: 20100628
  Receipt Date: 20100615
  Transmission Date: 20101027
  Serious: Yes (Hospitalization)
  Sender: FDA-Public Use
  Company Number: 7008371

PATIENT
  Age: 35 Year
  Sex: Male

DRUGS (2)
  1. REBIF [Suspect]
     Indication: DRUG USE FOR UNKNOWN INDICATION
     Dosage: 22 MCG
     Dates: start: 20100414, end: 20100401
  2. REBIF [Suspect]
     Indication: DRUG USE FOR UNKNOWN INDICATION
     Dosage: 22 MCG
     Dates: start: 20100401, end: 20100430

REACTIONS (6)
  - ANXIETY [None]
  - BACK PAIN [None]
  - DISTURBANCE IN ATTENTION [None]
  - GALLBLADDER DISORDER [None]
  - MEMORY IMPAIRMENT [None]
  - SENSATION OF PRESSURE [None]
